FAERS Safety Report 6669541-0 (Version None)
Quarter: 2010Q2

REPORT INFORMATION
  Report Type: 
  Country: None (occurrence: None)
  Receive Date: 20100406
  Receipt Date: 20100323
  Transmission Date: 20101027
  Serious: Yes (Hospitalization)
  Sender: FDA-Public Use
  Company Number: US-MYLANLABS-2010S1004787

PATIENT
  Age: 14 Year
  Sex: Female

DRUGS (4)
  1. PHENOBARBITAL TAB [Suspect]
     Indication: EPILEPSY
     Route: 065
  2. CARBAMAZEPINE [Suspect]
     Indication: EPILEPSY
     Route: 065
  3. VALPROATE SODIUM [Suspect]
     Indication: EPILEPSY
     Route: 065
  4. ZONISAMIDE [Suspect]
     Indication: EPILEPSY
     Route: 065

REACTIONS (2)
  - OVARIAN GRANULOSA-THECA CELL TUMOUR [None]
  - PERITONITIS SCLEROSING [None]
